FAERS Safety Report 7952606-0 (Version None)
Quarter: 2011Q4

REPORT INFORMATION
  Report Type: 
  Country: None (occurrence: None)
  Receive Date: 20111201
  Receipt Date: 20111125
  Transmission Date: 20120403
  Serious: Yes (Other)
  Sender: FDA-Public Use
  Company Number: CA-JNJFOC-20110508448

PATIENT
  Sex: Female
  Weight: 68.04 kg

DRUGS (4)
  1. STELARA [Suspect]
     Indication: PSORIASIS
     Dosage: UNSPECIFIED CLINICAL TRIAL
     Route: 058
     Dates: start: 20100615
  2. STELARA [Suspect]
     Route: 058
     Dates: start: 20101228
  3. STELARA [Suspect]
     Dosage: INITIAL COMMERCIAL DOSE
     Route: 058
     Dates: start: 20110323
  4. PROGESTERONE [Concomitant]
     Route: 061

REACTIONS (1)
  - PUSTULAR PSORIASIS [None]
